FAERS Safety Report 7934654-X (Version None)
Quarter: 2011Q4

REPORT INFORMATION
  Report Type: 
  Country: None (occurrence: None)
  Receive Date: 20111117
  Receipt Date: 20111109
  Transmission Date: 20120403
  Serious: Yes (Other)
  Sender: FDA-Public Use
  Company Number: 2011SP051400

PATIENT
  Age: 34 Year
  Sex: Female
  Weight: 56 kg

DRUGS (2)
  1. DESOGESTREL AND ETHINYL ESTRADIOL [Suspect]
     Indication: CONTRACEPTION
     Dosage: ;QD;PO
     Route: 048
     Dates: start: 20111024
  2. ALPRAZOLAM [Concomitant]

REACTIONS (4)
  - ALOPECIA [None]
  - MENSTRUATION IRREGULAR [None]
  - HEADACHE [None]
  - MALAISE [None]
